FAERS Safety Report 9881878 (Version 1)
Quarter: 2014Q1

REPORT INFORMATION
  Report Type: Spontaneous
  Country: US (occurrence: US)
  Receive Date: 20140207
  Receipt Date: 20140207
  Transmission Date: 20141002
  Serious: No
  Sender: FDA-Public Use
  Company Number: US-B.I. PHARMACEUTICALS,INC./RIDGEFIELD-2014-BI-04999BP

PATIENT
  Sex: Female
  Weight: 86.36 kg

DRUGS (13)
  1. MOBIC [Suspect]
     Indication: OSTEOARTHRITIS
     Dosage: 15 MG
     Route: 048
     Dates: start: 2005
  2. WARFARIN [Concomitant]
     Route: 048
  3. DEXILANT [Concomitant]
     Route: 048
  4. LEVOTHYROXINE [Concomitant]
     Route: 048
  5. POTASSIUM CHLORIDE [Concomitant]
     Route: 048
  6. ZOLOFT [Concomitant]
     Route: 048
  7. LOMOTIL [Concomitant]
     Route: 048
  8. LORAZEPAM [Concomitant]
     Route: 048
  9. GABAPENTIN [Concomitant]
     Route: 048
  10. ATORVASTATIN [Concomitant]
     Route: 048
  11. METOPROLOL [Concomitant]
     Route: 048
  12. ASPIRIN [Concomitant]
     Route: 048
  13. LISINOPRIL [Concomitant]
     Route: 048

REACTIONS (4)
  - Pain [Recovered/Resolved]
  - Pain [Recovered/Resolved]
  - Drug effect decreased [Unknown]
  - Activities of daily living impaired [Recovered/Resolved]
